FAERS Safety Report 9361231 (Version 1)
Quarter: 2013Q2

REPORT INFORMATION
  Report Type: Spontaneous
  Country: US (occurrence: US)
  Receive Date: 20130621
  Receipt Date: 20130621
  Transmission Date: 20140414
  Serious: Yes (Other)
  Sender: FDA-Public Use
  Company Number: US-BRISTOL-MYERS SQUIBB COMPANY-19025535

PATIENT
  Age: 69 Year
  Sex: Female
  Weight: 63.49 kg

DRUGS (9)
  1. ABATACEPT SUBQ INJECTION 125MG/ML [Suspect]
     Indication: RHEUMATOID ARTHRITIS
     Route: 058
     Dates: end: 201303
  2. GABAPENTIN [Concomitant]
  3. HUMALOG [Concomitant]
  4. PROLAIR [Concomitant]
  5. REQUIP [Concomitant]
  6. SYMLIN [Concomitant]
  7. TRAMADOL [Concomitant]
  8. VITAMIN D [Concomitant]
  9. VIVELLE [Concomitant]

REACTIONS (2)
  - Foot deformity [Unknown]
  - Drug ineffective [Unknown]
